FAERS Safety Report 12422735 (Version 1)
Quarter: 2016Q2

REPORT INFORMATION
  Report Type: Spontaneous
  Country: GB (occurrence: GB)
  Receive Date: 20160601
  Receipt Date: 20160601
  Transmission Date: 20160815
  Serious: Yes (Other)
  Sender: FDA-Public Use
  Company Number: GB-JNJFOC-20160525656

PATIENT
  Age: 48 Year
  Sex: Male
  Weight: 67 kg

DRUGS (5)
  1. PRED FORTE [Concomitant]
     Active Substance: PREDNISOLONE ACETATE
     Indication: PRODUCT USED FOR UNKNOWN INDICATION
     Dosage: DOSE: 2 (UNIT UNSPECIFIED) ??CUMULATIVE DOSE: 3583.66666 (UNIT UNSPECIFIED). ?? 1 DROP BOTH EYES
     Route: 047
     Dates: start: 20150218
  2. IBUPROFEN. [Suspect]
     Active Substance: IBUPROFEN
     Route: 065
  3. IBUPROFEN. [Suspect]
     Active Substance: IBUPROFEN
     Indication: PRODUCT USED FOR UNKNOWN INDICATION
     Route: 065
     Dates: start: 20160212
  4. FLUCONAZOLE. [Concomitant]
     Active Substance: FLUCONAZOLE
     Indication: PRODUCT USED FOR UNKNOWN INDICATION
     Dosage: DOSE: 1 (UNIT UNSPECIFIED)??CUMULATIVE DOSE TO FIRST REACTION: 35 (UNIT UNSPECIFIED)
     Route: 065
     Dates: start: 20160406, end: 20160413
  5. METHOTREXATE [Concomitant]
     Active Substance: METHOTREXATE
     Indication: PRODUCT USED FOR UNKNOWN INDICATION
     Dosage: CUMULATIVE DOSE TO FIRST REACTION: 585 (UNIT UNSPECIFIED). TAKE SIX= 15 MG WEEKLY
     Route: 065
     Dates: start: 20150812, end: 20160504

REACTIONS (1)
  - Anaphylactic reaction [Recovered/Resolved]

NARRATIVE: CASE EVENT DATE: 20160511
